FAERS Safety Report 11796837 (Version 1)
Quarter: 2015Q4

REPORT INFORMATION
  Report Type: Spontaneous
  Country: US (occurrence: None)
  Receive Date: 20151202
  Receipt Date: 20151202
  Transmission Date: 20160305
  Serious: Yes (Hospitalization)
  Sender: FDA-Public Use
  Company Number: None

PATIENT
  Age: 62 Year
  Sex: Female

DRUGS (2)
  1. PARAPLATIN [Suspect]
     Active Substance: CARBOPLATIN
     Indication: BREAST CANCER
     Dosage: AUC 6 I Q 3 WEEKS
     Dates: start: 20151119
  2. TAXOTERE [Suspect]
     Active Substance: DOCETAXEL
     Indication: BREAST CANCER
     Route: 042
     Dates: start: 20151119

REACTIONS (5)
  - Febrile neutropenia [None]
  - Infection [None]
  - Abdominal pain [None]
  - Diarrhoea [None]
  - Gastrointestinal oedema [None]

NARRATIVE: CASE EVENT DATE: 20151127
